FAERS Safety Report 8298500-X (Version None)
Quarter: 2012Q2

REPORT INFORMATION
  Report Type: 
  Country: None (occurrence: None)
  Receive Date: 20120419
  Receipt Date: 20120124
  Transmission Date: 20120825
  Serious: No
  Sender: FDA-Public Use
  Company Number: US-ABBOTT-12P-163-0896831-00

PATIENT
  Sex: Female
  Weight: 26.332 kg

DRUGS (1)
  1. LUPRON DEPOT [Suspect]
     Indication: PRECOCIOUS PUBERTY
     Dates: start: 20110101, end: 20110901

REACTIONS (5)
  - ABSCESS STERILE [None]
  - INJECTION SITE HAEMORRHAGE [None]
  - INJECTION SITE ABSCESS [None]
  - INJECTION SITE SWELLING [None]
  - INJECTION SITE MASS [None]
